FAERS Safety Report 24560295 (Version 1)
Quarter: 2024Q4

REPORT INFORMATION
  Report Type: Report from Study
  Country: US (occurrence: US)
  Receive Date: 20241029
  Receipt Date: 20241029
  Transmission Date: 20250115
  Serious: Yes (Other)
  Sender: AMGEN
  Company Number: US-AMGEN-USASL2024198728

PATIENT
  Age: 71 Year
  Sex: Female

DRUGS (14)
  1. TEPEZZA [Suspect]
     Active Substance: TEPROTUMUMAB-TRBW
     Indication: Endocrine ophthalmopathy
     Dosage: UNK
     Route: 042
     Dates: start: 20240715
  2. TEPEZZA [Suspect]
     Active Substance: TEPROTUMUMAB-TRBW
     Dosage: 1500 MILLIGRAM, Q3WK, FOURTH INFUSION
     Route: 042
     Dates: start: 2024
  3. STERILE WATER [Concomitant]
     Active Substance: WATER
  4. SODIUM CHLORIDE [Concomitant]
     Active Substance: SODIUM CHLORIDE
  5. ALKA-SELTZER [Concomitant]
     Active Substance: ANHYDROUS CITRIC ACID\ASPIRIN\SODIUM BICARBONATE
     Dosage: 344-1050MG TABLET EFF
  6. AIRBORNE [Concomitant]
     Active Substance: HERBALS\MINERALS\VITAMINS
     Dosage: 1000-50 MG
  7. FISH OIL [Concomitant]
     Active Substance: FISH OIL
     Dosage: 1200 MILLIGRAM
  8. TYLENOL ARTHRITIS PAIN [Concomitant]
     Active Substance: ACETAMINOPHEN
     Dosage: 650 MILLIGRAM
  9. ZINC [Concomitant]
     Active Substance: ZINC
     Dosage: 66 MILLIGRAM
  10. VITAMIN D3 [Concomitant]
     Active Substance: CHOLECALCIFEROL
     Dosage: UNK, 10 MCG
  11. VITAMIN E [Concomitant]
     Active Substance: .ALPHA.-TOCOPHEROL
     Dosage: UNK, 1000 UNIT
  12. MELOXICAM [Concomitant]
     Active Substance: MELOXICAM
     Dosage: 10 MILLIGRAM
  13. LUTEIN [Concomitant]
     Active Substance: LUTEIN
  14. GAS-X [Concomitant]
     Active Substance: DIMETHICONE
     Dosage: UNK, 125 MG

REACTIONS (6)
  - Syncope [Unknown]
  - Myalgia [Not Recovered/Not Resolved]
  - Urinary tract infection [Unknown]
  - Fatigue [Unknown]
  - Tinnitus [Unknown]
  - Muscle spasms [Unknown]

NARRATIVE: CASE EVENT DATE: 20241004
